FAERS Safety Report 21334897 (Version 1)
Quarter: 2022Q3

REPORT INFORMATION
  Report Type: Spontaneous
  Country: PH (occurrence: PH)
  Receive Date: 20220914
  Receipt Date: 20220914
  Transmission Date: 20221027
  Serious: Yes (Death, Other)
  Sender: FDA-Public Use
  Company Number: PH-GILEAD-2022-0597545

PATIENT
  Age: 61 Year
  Sex: Male
  Weight: 78 kg

DRUGS (19)
  1. VEKLURY [Suspect]
     Active Substance: REMDESIVIR
     Indication: COVID-19
     Dosage: 200 MG, QD
     Route: 065
     Dates: start: 20220815, end: 20220817
  2. ACETAMINOPHEN [Concomitant]
     Active Substance: ACETAMINOPHEN
  3. DIPHENHYDRAMINE [Concomitant]
     Active Substance: DIPHENHYDRAMINE
  4. PIPERACILLIN AND TAZOBACTAM [Concomitant]
     Active Substance: PIPERACILLIN SODIUM\TAZOBACTAM SODIUM
  5. MEDROL [Concomitant]
     Active Substance: METHYLPREDNISOLONE
  6. MEROPENEM [Concomitant]
     Active Substance: MEROPENEM
  7. VANCOMYCIN HYDROCHLORIDE [Concomitant]
     Active Substance: VANCOMYCIN HYDROCHLORIDE
  8. SOLU-MEDROL [Concomitant]
     Active Substance: METHYLPREDNISOLONE SODIUM SUCCINATE
  9. TRANSMETIL [ADEMETIONINE] [Concomitant]
  10. UDCACID [Concomitant]
  11. MOXIFLOXACIN HYDROCHLORIDE [Concomitant]
     Active Substance: MOXIFLOXACIN HYDROCHLORIDE
  12. OXYGEN [Concomitant]
     Active Substance: OXYGEN
  13. DEXAMETHASONE [Concomitant]
     Active Substance: DEXAMETHASONE
     Dosage: UNK
     Dates: start: 20220816, end: 20220820
  14. TIGECYCLINE [Concomitant]
     Active Substance: TIGECYCLINE
     Dosage: UNK
     Dates: start: 20220815, end: 20220818
  15. CEFEPIME [CEFEPIME HYDROCHLORIDE] [Concomitant]
     Dosage: UNK
     Dates: start: 20220815, end: 20220818
  16. AMIKACIN [Concomitant]
     Active Substance: AMIKACIN
     Dosage: UNK
     Dates: start: 20220818
  17. CEFTOLOZANE SULFATE [Concomitant]
     Active Substance: CEFTOLOZANE SULFATE
     Dosage: UNK
     Dates: start: 20220818
  18. CLINDAMYCIN [Concomitant]
     Active Substance: CLINDAMYCIN
     Dosage: UNK
     Dates: start: 20220818
  19. ZIMBERELIMAB [Concomitant]
     Active Substance: ZIMBERELIMAB

REACTIONS (5)
  - Disease progression [Fatal]
  - Cerebral infarction [Unknown]
  - Acute respiratory failure [Unknown]
  - Pulmonary embolism [Unknown]
  - Ventricular tachycardia [Recovered/Resolved]

NARRATIVE: CASE EVENT DATE: 20220820
